FAERS Safety Report 7100131-1 (Version None)
Quarter: 2010Q4

REPORT INFORMATION
  Report Type: 
  Country: None (occurrence: None)
  Receive Date: 20101112
  Receipt Date: 20100503
  Transmission Date: 20110411
  Serious: No
  Sender: FDA-Public Use
  Company Number: A0853783A

PATIENT
  Age: 79 Year
  Sex: Male
  Weight: 67.3 kg

DRUGS (2)
  1. COREG [Suspect]
     Route: 065
  2. COREG CR [Suspect]
     Route: 065

REACTIONS (1)
  - HYPOGLYCAEMIA [None]
